FAERS Safety Report 23571005 (Version 2)
Quarter: 2024Q1

REPORT INFORMATION
  Report Type: Spontaneous
  Country: US (occurrence: US)
  Receive Date: 20240227
  Receipt Date: 20240315
  Transmission Date: 20240410
  Serious: No
  Sender: FDA-Public Use
  Company Number: US-PFIZER INC-202400050514

PATIENT
  Age: 22 Year
  Sex: Female

DRUGS (2)
  1. TOFACITINIB [Suspect]
     Active Substance: TOFACITINIB
     Indication: Alopecia totalis
     Dosage: UNK
  2. BARICITINIB [Suspect]
     Active Substance: BARICITINIB
     Indication: Alopecia totalis
     Dosage: UNK

REACTIONS (2)
  - Drug ineffective for unapproved indication [Unknown]
  - Off label use [Unknown]
